FAERS Safety Report 8239963-5 (Version None)
Quarter: 2012Q1

REPORT INFORMATION
  Report Type: 
  Country: None (occurrence: None)
  Receive Date: 20120328
  Receipt Date: 20120323
  Transmission Date: 20120608
  Serious: Yes (Hospitalization)
  Sender: FDA-Public Use
  Company Number: US-B.I. PHARMACEUTICALS,INC./RIDGEFIELD-2011-BP-28381BP

PATIENT
  Sex: Male

DRUGS (13)
  1. DILTIAZEM HCL [Concomitant]
     Indication: ATRIAL FIBRILLATION
  2. LOVAZA [Concomitant]
     Dates: end: 20111104
  3. ALLOPURINOL [Concomitant]
     Indication: GOUT
  4. COLCHICINE [Concomitant]
     Indication: GOUT
     Dates: end: 20111104
  5. METFORMIN HCL [Concomitant]
     Indication: TYPE 2 DIABETES MELLITUS
     Dosage: 1000 MG
  6. PRADAXA [Suspect]
     Indication: ATRIAL FIBRILLATION
     Dosage: 300 MG
     Route: 048
     Dates: start: 20111025, end: 20120301
  7. METOPROLOL SUCCINATE [Concomitant]
     Indication: ATRIAL FIBRILLATION
     Dosage: 25 MG
  8. TYLENOL W/ CODEINE NO. 3 [Concomitant]
     Indication: GOUT
     Route: 048
  9. COZAAR [Concomitant]
     Indication: HYPERTENSION
  10. ACTONEL [Concomitant]
     Indication: ELECTROLYTE SUBSTITUTION THERAPY
  11. OMEPRAZOLE [Concomitant]
     Indication: GASTROOESOPHAGEAL REFLUX DISEASE
     Dosage: 20 MG
  12. FLECAINIDE ACETATE [Concomitant]
     Indication: ATRIAL FIBRILLATION
  13. GLIMEPIRIDE [Concomitant]
     Indication: TYPE 2 DIABETES MELLITUS

REACTIONS (7)
  - INCONTINENCE [None]
  - DIZZINESS [None]
  - HEART RATE IRREGULAR [None]
  - CONFUSIONAL STATE [None]
  - DIARRHOEA [None]
  - BLOOD PRESSURE INCREASED [None]
  - BALANCE DISORDER [None]
